FAERS Safety Report 8847190 (Version 1)
Quarter: 2012Q4

REPORT INFORMATION
  Report Type: Report from Study
  Country: CA (occurrence: CA)
  Receive Date: 20121018
  Receipt Date: 20121018
  Transmission Date: 20130627
  Serious: Yes (Other)
  Sender: FDA-Public Use
  Company Number: CA-JNJFOC-20121002788

PATIENT
  Age: 38 None
  Sex: Female
  Weight: 81.65 kg

DRUGS (5)
  1. REMICADE [Suspect]
     Indication: COLITIS ULCERATIVE
     Route: 042
     Dates: start: 20120504
  2. REMICADE [Suspect]
     Indication: COLITIS ULCERATIVE
     Route: 042
     Dates: start: 20121003
  3. REMICADE [Suspect]
     Indication: COLITIS ULCERATIVE
     Route: 042
     Dates: start: 201110
  4. BENADRYL [Concomitant]
     Indication: PREMEDICATION
     Route: 065
  5. GRAVOL [Concomitant]
     Indication: PREMEDICATION
     Route: 065

REACTIONS (5)
  - Arthritis [Unknown]
  - Colitis ulcerative [Unknown]
  - Vomiting [Unknown]
  - Pyrexia [Unknown]
  - Nausea [Unknown]
